FAERS Safety Report 7805108-6 (Version None)
Quarter: 2011Q4

REPORT INFORMATION
  Report Type: 
  Country: None (occurrence: None)
  Receive Date: 20111010
  Receipt Date: 20110930
  Transmission Date: 20120403
  Serious: Yes (Hospitalization)
  Sender: FDA-Public Use
  Company Number: PHHY2011PT86623

PATIENT
  Age: 64 Year
  Sex: Female

DRUGS (3)
  1. CALCIUM CARBONATE [Concomitant]
     Indication: HYPOCALCAEMIA
  2. ZOLEDRONOC ACID [Suspect]
     Dosage: UNK
     Route: 042
     Dates: start: 20110919
  3. VITAMIN D [Concomitant]
     Indication: HYPOCALCAEMIA

REACTIONS (6)
  - ANGINA PECTORIS [None]
  - PALLOR [None]
  - PYREXIA [None]
  - ARTHRITIS [None]
  - HYPERHIDROSIS [None]
  - HYPOCALCAEMIA [None]
